FAERS Safety Report 9347288 (Version 5)
Quarter: 2013Q4

REPORT INFORMATION
  Report Type: Report from Study
  Country: US (occurrence: US)
  Receive Date: 20130613
  Receipt Date: 20131105
  Transmission Date: 20140711
  Serious: Yes (Hospitalization)
  Sender: FDA-Public Use
  Company Number: PHHO2013US007670

PATIENT
  Age: 75 Year
  Sex: Female
  Weight: 69 kg

DRUGS (14)
  1. LBH589 [Suspect]
     Indication: PLASMA CELL MYELOMA
     Dosage: 20 MG, TIW
     Route: 048
     Dates: start: 20130218, end: 20130323
  2. LBH589 [Suspect]
     Dosage: 15 MG, TIW
     Route: 048
     Dates: start: 20130402, end: 20130430
  3. DEXAMETHASONE TABLETS USP [Suspect]
     Indication: PLASMA CELL MYELOMA
     Dosage: 4 MG, UNK
     Dates: start: 20130218, end: 20130529
  4. CARFILZOMIB [Suspect]
     Indication: PLASMA CELL MYELOMA
     Dosage: 35 MG, (20 MG/M2) ONCE/SINGLE
     Route: 042
     Dates: start: 20130218, end: 20130219
  5. CARFILZOMIB [Suspect]
     Dosage: 63 MG, (36 MG/M^2) ONCE/SINGLE
     Route: 042
     Dates: start: 20130225, end: 20130529
  6. POLYETHYLENE GLYCOL [Concomitant]
     Dosage: UNK
     Dates: start: 20111031
  7. DOCUSATE [Concomitant]
     Dosage: UNK
     Dates: start: 20121227
  8. CARVEDILOL [Concomitant]
     Dosage: UNK
     Dates: start: 20130319
  9. AMLODIPINE [Concomitant]
     Dosage: UNK
     Dates: start: 20120402
  10. ALLOPURINOL [Concomitant]
     Dosage: UNK
     Dates: start: 20130326
  11. POTASSIUM CHLORIDE [Concomitant]
     Dosage: UNK
     Dates: start: 20130218
  12. ONDANSETRON [Concomitant]
     Dosage: UNK
     Dates: start: 20130320
  13. PROCHLORPERAZINE [Concomitant]
     Dosage: UNK
     Dates: start: 20130218
  14. ACYCLOVIR [Concomitant]
     Dosage: UNK
     Dates: start: 20130327

REACTIONS (1)
  - Decreased appetite [Not Recovered/Not Resolved]
